FAERS Safety Report 4349919-0 (Version None)
Quarter: 2004Q2

REPORT INFORMATION
  Report Type: 
  Country: None (occurrence: None)
  Receive Date: 20040426
  Receipt Date: 20040413
  Transmission Date: 20050107
  Serious: Yes (Hospitalization)
  Sender: FDA-Public Use
  Company Number: 2004209790DE

PATIENT
  Age: 51 Year
  Sex: Female
  Weight: 60 kg

DRUGS (8)
  1. EPIRUBICIN [Suspect]
     Indication: BREAST CANCER
     Dosage: 148 MG, IV
     Route: 042
     Dates: start: 20021101, end: 20021101
  2. EPIRUBICIN [Suspect]
     Indication: BREAST CANCER
     Dosage: 148 MG, IV
     Route: 042
     Dates: start: 20030103, end: 20030103
  3. TRASTUZUMAB [Suspect]
     Indication: BREAST CANCER
     Dosage: 372 MG, IV
     Route: 042
     Dates: start: 20030223, end: 20030203
  4. TRASTUZUMAB [Suspect]
     Indication: BREAST CANCER
     Dosage: 372 MG, IV
     Route: 042
     Dates: start: 20040223, end: 20040223
  5. PACLITAXEL [Suspect]
     Indication: BREAST CANCER
     Dosage: 294 MG, IV
     Route: 042
     Dates: start: 20030204, end: 20030204
  6. PACLITAXEL [Suspect]
     Indication: BREAST CANCER
     Dosage: 294 MG, IV
     Route: 042
     Dates: start: 20030414, end: 20030414
  7. CYCLOPHOSPHAMIDE [Suspect]
     Indication: BREAST CANCER
     Dosage: 1000 MG, IV
     Route: 042
     Dates: start: 20030103, end: 20030103
  8. CYCLOPHOSPHAMIDE [Suspect]
     Indication: BREAST CANCER
     Dosage: 1000 MG, IV
     Route: 042
     Dates: start: 20031101, end: 20031101

REACTIONS (5)
  - AORTIC ATHEROSCLEROSIS [None]
  - AORTIC VALVE INCOMPETENCE [None]
  - EJECTION FRACTION DECREASED [None]
  - MITRAL VALVE INCOMPETENCE [None]
  - TRICUSPID VALVE INCOMPETENCE [None]
